FAERS Safety Report 12336198 (Version 3)
Quarter: 2017Q3

REPORT INFORMATION
  Report Type: Spontaneous
  Country: US (occurrence: US)
  Receive Date: 20160505
  Receipt Date: 20170731
  Transmission Date: 20171127
  Serious: Yes (Hospitalization, Other)
  Sender: FDA-Public Use
  Company Number: US-PFIZER INC-2016245572

PATIENT
  Age: 34 Year
  Sex: Female

DRUGS (2)
  1. EFFEXOR XR [Suspect]
     Active Substance: VENLAFAXINE HYDROCHLORIDE
     Indication: DEPRESSION
     Dosage: 75 MG, 1X/DAY AND 150 MG, 1X/DAY
     Dates: end: 201605
  2. EFFEXOR XR [Suspect]
     Active Substance: VENLAFAXINE HYDROCHLORIDE
     Indication: ANXIETY
     Dosage: 75 MG, 1X/DAY AND 150 MG, 1X/DAY
     Dates: start: 2017

REACTIONS (31)
  - Amnesia [Unknown]
  - Suicidal ideation [Unknown]
  - Euphoric mood [Unknown]
  - Anxiety [Unknown]
  - Migraine [Unknown]
  - Headache [Unknown]
  - Impaired work ability [Unknown]
  - Decreased appetite [Unknown]
  - Erythema [Unknown]
  - Alopecia [Unknown]
  - Drug withdrawal syndrome [Unknown]
  - Dermatillomania [Unknown]
  - Burning sensation [Unknown]
  - Dependence [Unknown]
  - Substance use [Unknown]
  - Paranoia [Recovered/Resolved]
  - Fear [Unknown]
  - Psychomotor hyperactivity [Unknown]
  - Legal problem [Not Recovered/Not Resolved]
  - Hunger [Unknown]
  - Depression [Not Recovered/Not Resolved]
  - Confusional state [Unknown]
  - Affect lability [Unknown]
  - Stress [Unknown]
  - Weight decreased [Unknown]
  - Muscle twitching [Unknown]
  - Obsessive-compulsive disorder [Unknown]
  - Logorrhoea [Unknown]
  - Weight increased [Unknown]
  - Tachyphrenia [Unknown]
  - Drug screen false positive [Not Recovered/Not Resolved]

NARRATIVE: CASE EVENT DATE: 2016
